FAERS Safety Report 13875534 (Version 2)
Quarter: 2017Q3

REPORT INFORMATION
  Report Type: Spontaneous
  Country: IT (occurrence: IT)
  Receive Date: 20170817
  Receipt Date: 20170821
  Transmission Date: 20171127
  Serious: Yes (Other)
  Sender: FDA-Public Use
  Company Number: IT-ROCHE-1976301

PATIENT
  Age: 16 Year
  Sex: Male

DRUGS (3)
  1. ARGININE [Concomitant]
     Active Substance: ARGININE
  2. HUMAN GROWTH HORMONE [Suspect]
     Active Substance: SOMATROPIN
     Indication: GROWTH HORMONE DEFICIENCY
     Dosage: 12 U/M2
     Route: 065
  3. INSULIN [Concomitant]
     Active Substance: INSULIN NOS

REACTIONS (1)
  - Lipids increased [Recovering/Resolving]
